FAERS Safety Report 4445245-X (Version None)
Quarter: 2004Q3

REPORT INFORMATION
  Report Type: 
  Country: None (occurrence: None)
  Receive Date: 20040902
  Receipt Date: 20040819
  Transmission Date: 20050211
  Serious: Yes (Hospitalization)
  Sender: FDA-Public Use
  Company Number: FABR-10740

PATIENT
  Age: 55 Year
  Sex: Female

DRUGS (3)
  1. FABRAZYME [Suspect]
     Indication: FABRY'S DISEASE
     Dates: start: 20040701
  2. COUMADIN [Concomitant]
  3. BACTRIM [Concomitant]

REACTIONS (1)
  - PANCREATITIS ACUTE [None]
